FAERS Safety Report 16428302 (Version 11)
Quarter: 2020Q3

REPORT INFORMATION
  Report Type: Report from Study
  Country: US (occurrence: US)
  Receive Date: 20190613
  Receipt Date: 20200806
  Transmission Date: 20201102
  Serious: Yes (Hospitalization)
  Sender: FDA-Public Use
  Company Number: US-ACTELION-A-NJ2019-191431

PATIENT
  Age: 31 Year
  Sex: Female
  Weight: 68.03 kg

DRUGS (11)
  1. VELETRI [Suspect]
     Active Substance: EPOPROSTENOL
     Dosage: 15 NG/KG, PER MIN
     Route: 042
  2. XARELTO [Concomitant]
     Active Substance: RIVAROXABAN
  3. VELETRI [Suspect]
     Active Substance: EPOPROSTENOL
     Indication: PULMONARY HYPERTENSION
     Dosage: 29 NG/KG, PER MIN
     Route: 042
     Dates: end: 202006
  4. VELETRI [Suspect]
     Active Substance: EPOPROSTENOL
     Dosage: 10.11 NG/KG, PER MIN
     Route: 042
  5. VELETRI [Suspect]
     Active Substance: EPOPROSTENOL
     Dosage: 9 NG/KG, PER MIN
     Route: 042
  6. VELETRI [Suspect]
     Active Substance: EPOPROSTENOL
     Dosage: 6 NG/KG, PER MIN
     Route: 042
  7. VELETRI [Suspect]
     Active Substance: EPOPROSTENOL
     Dosage: 18 NG/KG, PER MIN
     Route: 042
  8. VELETRI [Suspect]
     Active Substance: EPOPROSTENOL
     Dosage: 8 NG/KG, PER MIN
     Route: 042
     Dates: start: 20190531
  9. REVATIO [Concomitant]
     Active Substance: SILDENAFIL CITRATE
  10. VELETRI [Suspect]
     Active Substance: EPOPROSTENOL
     Dosage: 8.5 NG/KG, PER MIN
     Route: 042
  11. VELETRI [Suspect]
     Active Substance: EPOPROSTENOL
     Dosage: 13.3 NG/KG, PER MIN
     Route: 042

REACTIONS (23)
  - Vomiting [Unknown]
  - Menstrual disorder [Unknown]
  - Vulvovaginal discomfort [Unknown]
  - Dysmenorrhoea [Unknown]
  - Catheter site haemorrhage [Unknown]
  - Pain in jaw [Unknown]
  - Inappropriate schedule of product administration [Unknown]
  - Illness [Unknown]
  - Device dislocation [Unknown]
  - Catheter site related reaction [Unknown]
  - Unevaluable event [Unknown]
  - Skin sensitisation [Unknown]
  - Catheter management [Unknown]
  - Back pain [Unknown]
  - Headache [Unknown]
  - Pain of skin [Unknown]
  - Hospitalisation [Unknown]
  - Diarrhoea [Unknown]
  - Nausea [Unknown]
  - Eye pain [Unknown]
  - Abdominal pain [Unknown]
  - Device connection issue [Unknown]
  - Dyspnoea exertional [Unknown]

NARRATIVE: CASE EVENT DATE: 20190601
